FAERS Safety Report 9232349 (Version 2)
Quarter: 2013Q2

REPORT INFORMATION
  Report Type: Spontaneous
  Country: US (occurrence: US)
  Receive Date: 20130416
  Receipt Date: 20130509
  Transmission Date: 20140414
  Serious: No
  Sender: FDA-Public Use
  Company Number: US-009507513-1304USA005054

PATIENT
  Age: 56 Year
  Sex: Male

DRUGS (3)
  1. VICTRELIS [Suspect]
     Indication: HEPATITIS C
     Dosage: 800 MG, TID
     Route: 048
     Dates: start: 20130114
  2. PEGASYS [Suspect]
  3. RIBASPHERE [Suspect]

REACTIONS (3)
  - Emotional disorder [Unknown]
  - Sinus congestion [Unknown]
  - Rash generalised [Unknown]
